FAERS Safety Report 8695433 (Version 2)
Quarter: 2012Q4

REPORT INFORMATION
  Report Type: Report from Study
  Country: DE (occurrence: DE)
  Receive Date: 20120731
  Receipt Date: 20120917
  Transmission Date: 20130627
  Serious: Yes (Hospitalization)
  Sender: FDA-Public Use
  Company Number: DE-ACTELION-A-US2012-69423

PATIENT
  Age: 60 Year
  Sex: Male

DRUGS (12)
  1. VENTAVIS [Suspect]
     Indication: PULMONARY ARTERIAL HYPERTENSION
     Dosage: 2.5 ug, q4hrs
     Route: 055
     Dates: start: 20091103
  2. BOSENTAN [Concomitant]
     Dosage: UNK
     Route: 048
     Dates: start: 2003
  3. TADALAFIL [Concomitant]
  4. XIPAMID [Concomitant]
  5. SPIRONOLACTON [Concomitant]
  6. MAGNESIUM VERLA [Concomitant]
  7. THIAMAZOL [Concomitant]
  8. SORTIS [Concomitant]
  9. DIGITOXIN [Concomitant]
  10. TARGIN [Concomitant]
  11. NOVAMINSULFON [Concomitant]
  12. FALITHROM [Concomitant]

REACTIONS (3)
  - Inguinal hernia, obstructive [Recovered/Resolved]
  - Hernia repair [Recovered/Resolved]
  - Abdominal pain lower [Recovered/Resolved]
